FAERS Safety Report 18050130 (Version 1)
Quarter: 2020Q3

REPORT INFORMATION
  Report Type: Spontaneous
  Country: JP (occurrence: JP)
  Receive Date: 20200721
  Receipt Date: 20200721
  Transmission Date: 20201103
  Serious: Yes (Other)
  Sender: FDA-Public Use
  Company Number: JP-ROCHE-2644271

PATIENT
  Sex: Female

DRUGS (2)
  1. LORBRENA [Suspect]
     Active Substance: LORLATINIB
     Indication: LUNG NEOPLASM MALIGNANT
     Dosage: 100 MG DAILY, 2 WEEKS ON, 2 WEEKS OFF
     Route: 048
  2. ALECENSA [Suspect]
     Active Substance: ALECTINIB HYDROCHLORIDE
     Indication: PRODUCT USED FOR UNKNOWN INDICATION
     Dosage: ON 2 WEEKS AND OFF ON 2 WEEKS
     Route: 065

REACTIONS (3)
  - Blood cholesterol increased [Unknown]
  - Arrhythmia [Recovered/Resolved]
  - Disease progression [Unknown]
